FAERS Safety Report 9816711 (Version 1)
Quarter: 2014Q1

REPORT INFORMATION
  Report Type: Spontaneous
  Country: US (occurrence: US)
  Receive Date: 20140114
  Receipt Date: 20140114
  Transmission Date: 20141002
  Serious: No
  Sender: FDA-Public Use
  Company Number: US-ENDO PHARMACEUTICALS INC.-OXYA20120012

PATIENT
  Sex: Male

DRUGS (2)
  1. OXYCODONE/ACETAMINOPHEN [Suspect]
     Indication: INTERVERTEBRAL DISC DEGENERATION
     Dosage: 10/325 MG
     Route: 048
  2. OXYCODONE/ACETAMINOPHEN [Suspect]
     Indication: PAIN

REACTIONS (2)
  - Withdrawal syndrome [Not Recovered/Not Resolved]
  - Drug ineffective [Not Recovered/Not Resolved]
